FAERS Safety Report 13937130 (Version 1)
Quarter: 2017Q3

REPORT INFORMATION
  Report Type: Spontaneous
  Country: JP (occurrence: JP)
  Receive Date: 20170905
  Receipt Date: 20170905
  Transmission Date: 20171127
  Serious: Yes (Hospitalization, Other)
  Sender: FDA-Public Use
  Company Number: JP-VALIDUS PHARMACEUTICALS LLC-JP-2017VAL001296

PATIENT
  Age: 40 Year
  Sex: Male

DRUGS (6)
  1. DEXAMETHASONE. [Concomitant]
     Active Substance: DEXAMETHASONE
     Indication: PRODUCT USED FOR UNKNOWN INDICATION
  2. MANNITOL. [Suspect]
     Active Substance: MANNITOL
     Indication: DIURETIC THERAPY
     Dosage: 300 MG, QD
  3. BLEOMYCIN [Concomitant]
     Active Substance: BLEOMYCIN SULFATE
     Indication: PRODUCT USED FOR UNKNOWN INDICATION
  4. CISPLATIN. [Suspect]
     Active Substance: CISPLATIN
     Indication: TESTICULAR GERM CELL TUMOUR MIXED
     Dosage: 20 MG/M2, QD
  5. ETOPOSIDE. [Concomitant]
     Active Substance: ETOPOSIDE
     Indication: PRODUCT USED FOR UNKNOWN INDICATION
  6. FUROSEMIDE. [Suspect]
     Active Substance: FUROSEMIDE
     Indication: DIURETIC THERAPY
     Dosage: 20 MG, QD

REACTIONS (13)
  - Decreased appetite [Unknown]
  - Dehydration [Recovered/Resolved]
  - Sensory disturbance [Recovered/Resolved]
  - Monoplegia [Recovered/Resolved]
  - Fibrin degradation products increased [Unknown]
  - Superior sagittal sinus thrombosis [Recovered/Resolved]
  - Hemiparesis [Recovered/Resolved]
  - Hypercoagulation [Unknown]
  - Fibrin D dimer increased [Unknown]
  - Vomiting [Unknown]
  - Epilepsy [Recovered/Resolved]
  - Nausea [Unknown]
  - Headache [Recovered/Resolved]
